FAERS Safety Report 7139287-3 (Version None)
Quarter: 2010Q4

REPORT INFORMATION
  Report Type: 
  Country: None (occurrence: None)
  Receive Date: 20101206
  Receipt Date: 20100827
  Transmission Date: 20110411
  Serious: Yes (Hospitalization)
  Sender: FDA-Public Use
  Company Number: A0878132A

PATIENT

DRUGS (2)
  1. LAMICTAL [Suspect]
     Route: 065
  2. UNKNOWN [Concomitant]

REACTIONS (1)
  - RASH [None]
